FAERS Safety Report 5710799-X (Version None)
Quarter: 2008Q2

REPORT INFORMATION
  Report Type: 
  Country: None (occurrence: None)
  Receive Date: 20080417
  Receipt Date: 20080417
  Transmission Date: 20081010
  Serious: No
  Sender: FDA-Public Use
  Company Number: None

PATIENT
  Age: 45 Year
  Sex: Female

DRUGS (1)
  1. FERRLECIT [Suspect]
     Indication: NEPHROGENIC ANAEMIA
     Dosage: 250 MG X 4 IV DRIP
     Route: 041
     Dates: start: 20080412, end: 20080412

REACTIONS (1)
  - OEDEMA PERIPHERAL [None]
